FAERS Safety Report 21192154 (Version 5)
Quarter: 2022Q3

REPORT INFORMATION
  Report Type: Spontaneous
  Country: US (occurrence: US)
  Receive Date: 20220809
  Receipt Date: 20220930
  Transmission Date: 20221027
  Serious: Yes (Death, Hospitalization, Other)
  Sender: FDA-Public Use
  Company Number: US-BIOGEN-2022BI01143861

PATIENT
  Sex: Male
  Weight: 82.3 kg

DRUGS (46)
  1. ADUHELM [Suspect]
     Active Substance: ADUCANUMAB-AVWA
     Indication: Dementia Alzheimer^s type
     Dosage: INFUSION 1
     Route: 050
  2. ADUHELM [Suspect]
     Active Substance: ADUCANUMAB-AVWA
     Dosage: INFUSION 2
     Route: 050
  3. ADUHELM [Suspect]
     Active Substance: ADUCANUMAB-AVWA
     Dosage: INFUSION 3
     Route: 050
  4. ADUHELM [Suspect]
     Active Substance: ADUCANUMAB-AVWA
     Dosage: INFUSION 4
     Route: 050
  5. MEMANTINE [Concomitant]
     Active Substance: MEMANTINE
     Indication: Product used for unknown indication
     Route: 050
  6. CITALOPRAM HYDROBROMIDE [Concomitant]
     Active Substance: CITALOPRAM HYDROBROMIDE
     Indication: Product used for unknown indication
     Route: 050
  7. CITALOPRAM HYDROBROMIDE [Concomitant]
     Active Substance: CITALOPRAM HYDROBROMIDE
     Route: 050
  8. LISINOPRIL [Concomitant]
     Active Substance: LISINOPRIL
     Indication: Product used for unknown indication
     Route: 050
  9. METFORMIN HYDROCHLORIDE [Concomitant]
     Active Substance: METFORMIN HYDROCHLORIDE
     Indication: Product used for unknown indication
     Dosage: WITH MEALS
     Route: 050
  10. ROSUVASTATIN CALCIUM [Concomitant]
     Active Substance: ROSUVASTATIN CALCIUM
     Indication: Product used for unknown indication
     Route: 050
  11. DONEPEZIL HYDROCHLORIDE [Concomitant]
     Active Substance: DONEPEZIL HYDROCHLORIDE
     Indication: Product used for unknown indication
     Dosage: AT BEDTIME
     Route: 050
  12. ELIQUIS [Concomitant]
     Active Substance: APIXABAN
     Indication: Product used for unknown indication
     Dosage: STARTED 2-3 MONTHS AGO
     Route: 050
  13. COENZYME Q10 [Concomitant]
     Active Substance: DIETARY SUPPLEMENT\UBIDECARENONE
     Indication: Product used for unknown indication
     Route: 050
  14. COENZYME Q10 [Concomitant]
     Active Substance: DIETARY SUPPLEMENT\UBIDECARENONE
     Route: 050
  15. FISH OIL\OMEGA-3 FATTY ACIDS [Concomitant]
     Active Substance: FISH OIL\OMEGA-3 FATTY ACIDS
     Indication: Product used for unknown indication
     Route: 050
  16. REPATHA [Concomitant]
     Active Substance: EVOLOCUMAB
     Indication: Product used for unknown indication
     Dosage: 140 MG/ML INJECTION; 140MG SUBCUTANEOUSLY EVERY 14 DAYS
     Route: 050
  17. VITAMIN C [Concomitant]
     Active Substance: ASCORBIC ACID
     Indication: Product used for unknown indication
     Route: 050
  18. ACETAMINOPHEN [Concomitant]
     Active Substance: ACETAMINOPHEN
     Indication: Product used for unknown indication
     Dosage: 650 MG (2 TAB(S) ORALLY EVERY 6 HOURS)
     Route: 050
  19. ATORVASTATIN [Concomitant]
     Active Substance: ATORVASTATIN
     Indication: Product used for unknown indication
     Route: 050
  20. BACTROBAN [Concomitant]
     Active Substance: MUPIROCIN\MUPIROCIN CALCIUM
     Indication: Product used for unknown indication
     Dosage: BACTROBAN ( 2% NASAL DECOLONIZATION,  1 APPLICATION NASALLY TWICE DAILY),
     Route: 050
  21. cepacol throat lozenge [Concomitant]
     Indication: Oropharyngeal pain
     Dosage: CEPACOL SORE THROAT LOZENGES EVERY TWO HOURS AS NEEDED,
     Route: 050
  22. CHLORHEXIDINE [Concomitant]
     Active Substance: CHLORHEXIDINE
     Indication: Product used for unknown indication
     Dosage: CHLORHEXIDINE 2% TOPICAL WIPE ( ONE EACH TOPICALLY DAILY),
     Route: 050
  23. DEXTROSE [Concomitant]
     Active Substance: DEXTROSE
     Indication: Product used for unknown indication
     Dosage: DEXTROSE 50% IN WATER INTRAVENOUS SOLUTION,  12.5G=  25 ML,  IV PUSH, AS DIRECTED,  PRN,
     Route: 050
  24. DEXTROSE [Concomitant]
     Active Substance: DEXTROSE
     Dosage: DEXTROSE 50% IN WATER INTRAVENOUS SOLUTION,  25 G= 50 ML,  IV PUSH, AS DIRECTED,  PRN
     Route: 050
  25. GLUCAGON [Concomitant]
     Active Substance: GLUCAGON
     Indication: Product used for unknown indication
     Dosage: PRN
     Route: 050
  26. DEXTROSE [Concomitant]
     Active Substance: DEXTROSE
     Indication: Product used for unknown indication
     Dosage: 15G =1 EA PRN
     Route: 050
  27. HALDOL [Concomitant]
     Active Substance: HALOPERIDOL
     Indication: Agitation
     Dosage: 5MG= 1ML, EVERY 4 HRS, PRN
     Route: 050
  28. HEPARIN [Concomitant]
     Active Substance: HEPARIN SODIUM
     Indication: Product used for unknown indication
     Dosage: HEPARIN IV ADDITIVE 25,000 UNITS [1,300 UNITS/HR]  + PREMIX 0.45% SODIUM CHLORIDE
     Route: 050
  29. HUMALOG [Concomitant]
     Active Substance: INSULIN LISPRO
     Indication: Product used for unknown indication
     Dosage: MILD CORRECTION REGIMEN, SUBCUTANEOUS, BEFORE MEALS AND HS,
     Route: 050
  30. HYDRALAZINE [Concomitant]
     Active Substance: HYDRALAZINE HYDROCHLORIDE
     Indication: Product used for unknown indication
     Dosage: 10 MG= 0.5 ML,  IV PUSH, EVERY 4 HRS, PRN
     Route: 050
  31. LIDOCAINE [Concomitant]
     Active Substance: LIDOCAINE
     Indication: Product used for unknown indication
     Dosage: LIDOCAINE VISCOUS,  10 ML,  SWISH AND SWALLOW,  QID,  PRN
     Route: 050
  32. LOKELMA [Concomitant]
     Active Substance: SODIUM ZIRCONIUM CYCLOSILICATE
     Indication: Product used for unknown indication
     Route: 050
  33. magnesium  hydroxide/aluminum hydroxide/simethicone [Concomitant]
     Indication: Product used for unknown indication
     Dosage: 200 MG-200, MG-20 MG/5  ML ORAL SUSPENSION,  20 ML, ORAL, QID,  PRN
     Route: 050
  34. METOPROLOL TARTRATE [Concomitant]
     Active Substance: METOPROLOL TARTRATE
     Indication: Product used for unknown indication
     Dosage: 5 MG= 5 ML,  IV PUSH, PRN
     Route: 050
  35. MIDAZOLAM [Concomitant]
     Active Substance: MIDAZOLAM
     Indication: Product used for unknown indication
     Dosage: MIDAZOLAM IV ADDITIVE  100 MG [1  MG/HR], PREMIX
     Route: 050
  36. SODIUM CHLORIDE [Concomitant]
     Active Substance: SODIUM CHLORIDE
     Indication: Product used for unknown indication
     Dosage: SODIUM CHLORIDE 0.9% DRIP,: 100 ML
     Route: 050
  37. SODIUM CHLORIDE [Concomitant]
     Active Substance: SODIUM CHLORIDE
     Dosage: PREMIX SODIUM CHLORIDE 0.9% DRIP:  200 ML
     Route: 050
  38. SODIUM CHLORIDE [Concomitant]
     Active Substance: SODIUM CHLORIDE
     Dosage: SODIUM CHLORIDE 0.65% 1 SPRAY, 6 TIMES PER DAY, PRN
     Route: 050
  39. SODIUM CHLORIDE [Concomitant]
     Active Substance: SODIUM CHLORIDE
     Dosage: NACL 0.9% SOL. 1,000  ML, 1000 ML,  IV CONTINUOUS, VERSED, 2 MG= 2 ML,  IV PUSH, AS DIRECTED
     Route: 050
  40. MIRALAX [Concomitant]
     Active Substance: POLYETHYLENE GLYCOL 3350
     Indication: Product used for unknown indication
     Dosage: MIRALAX,  17 G= 1  PACKETS,  PRN,
     Route: 050
  41. MIDAZOLAM [Concomitant]
     Active Substance: MIDAZOLAM
     Indication: Product used for unknown indication
     Dosage: 5MIDAZOLAM IV ADDITIVE  100 MG [1  MG/HR], PREMIX
     Route: 050
  42. NICARDIPINE [Concomitant]
     Active Substance: NICARDIPINE
     Indication: Product used for unknown indication
     Dosage: NICARDIPINE IV ADDITIVE 20 MG [5 MG/HR],
     Route: 050
  43. MIDAZOLAM [Concomitant]
     Active Substance: MIDAZOLAM
     Indication: Product used for unknown indication
     Dosage: 5MIDAZOLAM IV ADDITIVE  100 MG [1  MG/HR], PREMIX
     Route: 050
  44. ZOFRAN [Concomitant]
     Active Substance: ONDANSETRON HYDROCHLORIDE
     Indication: Product used for unknown indication
     Dosage: 4 MG= 2 ML,  IV PUSH, PRN
     Route: 050
  45. HALDOL [Concomitant]
     Active Substance: HALOPERIDOL
     Indication: Agitation
     Route: 050
  46. MODERNA COVID-19 VACCINE [Concomitant]
     Active Substance: ELASOMERAN
     Indication: COVID-19 prophylaxis
     Dosage: 2 DOSES WITH BOOSTER
     Route: 050

REACTIONS (17)
  - Death [Fatal]
  - Seizure [Unknown]
  - Peripheral swelling [Unknown]
  - Motor dysfunction [Unknown]
  - Sensory loss [Unknown]
  - Atrial fibrillation [Unknown]
  - Cerebral haemorrhage [Unknown]
  - Confusional state [Unknown]
  - Amyloid related imaging abnormality-oedema/effusion [Not Recovered/Not Resolved]
  - Amyloid related imaging abnormality-microhaemorrhages and haemosiderin deposits [Unknown]
  - Muscular weakness [Not Recovered/Not Resolved]
  - Fine motor skill dysfunction [Unknown]
  - Hypoaesthesia [Unknown]
  - Paraesthesia [Unknown]
  - Mental status changes [Unknown]
  - Fall [Unknown]
  - Limb injury [Unknown]

NARRATIVE: CASE EVENT DATE: 20220101
